FAERS Safety Report 23090718 (Version 2)
Quarter: 2023Q4

REPORT INFORMATION
  Report Type: Spontaneous
  Country: US (occurrence: US)
  Receive Date: 20231020
  Receipt Date: 20231206
  Transmission Date: 20240109
  Serious: No
  Sender: FDA-Public Use
  Company Number: US-PFIZER INC-PV202300172575

PATIENT
  Age: 54 Year
  Sex: Female

DRUGS (2)
  1. VINCRISTINE SULFATE [Interacting]
     Active Substance: VINCRISTINE SULFATE
     Dosage: UNK
     Dates: start: 2015
  2. DESMOPRESSIN [Interacting]
     Active Substance: DESMOPRESSIN
     Indication: Diabetes insipidus
     Dosage: UNK
     Dates: start: 2015

REACTIONS (3)
  - Drug interaction [Unknown]
  - Hyponatraemia [Unknown]
  - Hypervolaemia [Unknown]

NARRATIVE: CASE EVENT DATE: 20150101
